FAERS Safety Report 21953599 (Version 1)
Quarter: 2023Q1

REPORT INFORMATION
  Report Type: Report from Study
  Country: US (occurrence: US)
  Receive Date: 20230204
  Receipt Date: 20230204
  Transmission Date: 20230418
  Serious: Yes (Other)
  Sender: FDA-Public Use
  Company Number: US-ACORDA-ACO_172254_2022

PATIENT
  Sex: Female

DRUGS (1)
  1. AMPYRA [Suspect]
     Active Substance: DALFAMPRIDINE
     Indication: Product used for unknown indication
     Dosage: 10 MILLIGRAM, BID
     Route: 048

REACTIONS (19)
  - Carpal tunnel decompression [Unknown]
  - Anal incontinence [Unknown]
  - Urinary incontinence [Unknown]
  - Visual impairment [Unknown]
  - Condition aggravated [Unknown]
  - Aphasia [Unknown]
  - Disturbance in attention [Unknown]
  - Memory impairment [Unknown]
  - Depression [Unknown]
  - Otitis externa [Unknown]
  - Micturition urgency [Unknown]
  - COVID-19 [Unknown]
  - Condition aggravated [Unknown]
  - Aphonia [Unknown]
  - Hypoaesthesia [Unknown]
  - Depression [Unknown]
  - Product dose omission issue [Unknown]
  - Paraesthesia [Unknown]
  - Paraesthesia [Unknown]
